FAERS Safety Report 13716129 (Version 2)
Quarter: 2017Q3

REPORT INFORMATION
  Report Type: Report from Study
  Country: US (occurrence: US)
  Receive Date: 20170705
  Receipt Date: 20170823
  Transmission Date: 20171127
  Serious: No
  Sender: FDA-Public Use
  Company Number: PHEH2017US020445

PATIENT
  Sex: Male

DRUGS (1)
  1. ENTRESTO [Suspect]
     Active Substance: SACUBITRIL\VALSARTAN
     Indication: PRODUCT USED FOR UNKNOWN INDICATION
     Dosage: 1 DF (SACUBITRIL 26 MG, VALSARTAN 24 MG), BID
     Route: 065

REACTIONS (4)
  - Hypobarism [Unknown]
  - Nocturnal dyspnoea [Unknown]
  - Dyspnoea exertional [Unknown]
  - Gait disturbance [Unknown]
